FAERS Safety Report 10229826 (Version 2)
Quarter: 2014Q2

REPORT INFORMATION
  Report Type: Spontaneous
  Country: US (occurrence: US)
  Receive Date: 20140611
  Receipt Date: 20140619
  Transmission Date: 20141212
  Serious: No
  Sender: FDA-Public Use
  Company Number: US-B.I. PHARMACEUTICALS,INC./RIDGEFIELD-2014-BI-24556BP

PATIENT
  Age: 78 Year
  Sex: Male
  Weight: 131 kg

DRUGS (22)
  1. COMBIVENT [Suspect]
     Indication: CHRONIC OBSTRUCTIVE PULMONARY DISEASE
     Dosage: DOSE PER APPLICATION: 20 MCG/100 MCG;
     Route: 055
     Dates: start: 201401, end: 20140603
  2. COMBIVENT [Suspect]
     Indication: ASTHMA
  3. COMBIVENT [Suspect]
     Indication: EMPHYSEMA
  4. ALBUTEROL [Concomitant]
     Indication: ASTHMA
     Dosage: 2 PUF
     Route: 065
  5. ALBUTEROL [Concomitant]
     Indication: CHRONIC OBSTRUCTIVE PULMONARY DISEASE
     Dosage: FORMULATION: NEBULIZER, STRENGTH: 1 AMPULE AT 3ML
     Route: 065
  6. ALBUTEROL [Concomitant]
     Indication: EMPHYSEMA
  7. FLUTICASONE [Concomitant]
     Indication: SINUS DISORDER
     Dosage: FORMULATION: NASAL SPRAY, ROUTE: NOSTRIL, DAILY DOSE: 2 SPRAY
     Route: 050
     Dates: start: 2012
  8. ALLOPURINOL [Concomitant]
     Indication: GOUT
     Dosage: 100 MG
     Route: 065
     Dates: start: 1974
  9. AMLODIPINE [Concomitant]
     Indication: CARDIAC DISORDER
     Dosage: 5 MG
     Route: 065
  10. MONTELUKAST SODIUM [Concomitant]
     Indication: ASTHMA
     Dosage: 10 MG
     Route: 065
  11. ZETIA [Concomitant]
     Dosage: 10 MG
     Route: 065
  12. LISINOPRIL [Concomitant]
     Indication: HYPERTENSION
     Dosage: 40 MG
     Route: 065
  13. LISINOPRIL [Concomitant]
     Indication: CARDIAC DISORDER
  14. LASIX [Concomitant]
     Indication: FLUID RETENTION
     Dosage: 80 MG
     Route: 065
  15. VENLAFAXINE [Concomitant]
     Indication: ANXIETY
     Dosage: 75 MG
     Route: 065
  16. ASPIRIN [Concomitant]
     Indication: CARDIAC DISORDER
     Dosage: 81 MG
     Route: 065
  17. ACIPHEX [Concomitant]
     Indication: GASTROOESOPHAGEAL REFLUX DISEASE
     Dosage: 40 MG
     Route: 065
  18. METOPROLOL SUCCINATE [Concomitant]
     Indication: HYPERTENSION
     Dosage: 100 MG
     Route: 065
  19. LIPITOR [Concomitant]
     Indication: BLOOD CHOLESTEROL INCREASED
     Dosage: 80 MG
     Route: 065
  20. AMBIEN [Concomitant]
     Indication: SLEEP DISORDER THERAPY
     Dosage: 12.5 MG
     Route: 065
  21. XANAX [Concomitant]
     Indication: AGITATION
     Dosage: 1 MG
     Route: 065
  22. NOVOLOG [Concomitant]
     Indication: TYPE 1 DIABETES MELLITUS
     Dosage: 60 U
     Route: 065

REACTIONS (5)
  - Chronic obstructive pulmonary disease [Unknown]
  - Wheezing [Unknown]
  - Drug ineffective [Unknown]
  - Product quality issue [Unknown]
  - Off label use [Unknown]
